FAERS Safety Report 8924037 (Version 1)
Quarter: 2012Q4

REPORT INFORMATION
  Report Type: 
  Country: JP (occurrence: JP)
  Receive Date: 20121127
  Receipt Date: 20121127
  Transmission Date: 20130627
  Serious: Yes (Hospitalization)
  Sender: FDA-Public Use
  Company Number: JP-ACCORD-015322

PATIENT
  Age: 33 Year
  Sex: Female
  Weight: 78 kg

DRUGS (6)
  1. ETOPOSIDE [Suspect]
     Indication: OVARIAN GERM CELL CANCER
     Dosage: three courses on days 1-5
  2. ONDANSETRON [Concomitant]
     Dosage: days 1-5
     Route: 042
  3. DEXAMETHASONE [Concomitant]
     Dosage: days 1-5
  4. CISPLATIN [Suspect]
     Indication: OVARIAN GERM CELL CANCER
     Dosage: three courses on days 1-5
  5. APREPITANT [Concomitant]
     Dosage: 125 mg, orally, day 1, and 80 mg orally, days
2-3
     Route: 048
  6. BLEOMYCIN [Suspect]
     Indication: OVARIAN GERM CELL CANCER
     Dosage: Three courses on day 2, 9, and 16

REACTIONS (3)
  - Embolism [Recovered/Resolved]
  - Cerebral infarction [Recovered/Resolved]
  - Off label use [Unknown]
